FAERS Safety Report 8548743-2 (Version None)
Quarter: 2012Q3

REPORT INFORMATION
  Report Type: 
  Country: None (occurrence: None)
  Receive Date: 20120730
  Receipt Date: 20120725
  Transmission Date: 20120928
  Serious: Yes (Other)
  Sender: FDA-Public Use
  Company Number: PHEH2012US011905

PATIENT
  Sex: Female

DRUGS (4)
  1. ZOMETA [Suspect]
     Indication: BREAST CANCER
     Route: 042
     Dates: start: 20010101
  2. HORMONES [Concomitant]
  3. ZOMETA [Suspect]
     Indication: OSTEOPOROSIS
  4. ZOMETA [Suspect]
     Indication: METASTASES TO BONE

REACTIONS (1)
  - SPINAL DISORDER [None]
